FAERS Safety Report 8227656-X (Version None)
Quarter: 2012Q1

REPORT INFORMATION
  Report Type: 
  Country: None (occurrence: None)
  Receive Date: 20120322
  Receipt Date: 20120315
  Transmission Date: 20120608
  Serious: Yes (Other)
  Sender: FDA-Public Use
  Company Number: BE-PFIZER INC-2012069617

PATIENT
  Age: 86 Year
  Sex: Male

DRUGS (2)
  1. METRONIDAZOLE [Suspect]
     Indication: INFECTION
     Dosage: 1.5 MG, 1X/DAY
     Route: 048
  2. CIPROFLOXACIN [Suspect]
     Dosage: 800 MG, 1X/DAY
     Route: 048

REACTIONS (4)
  - NYSTAGMUS [None]
  - NEUROPATHY PERIPHERAL [None]
  - CEREBELLAR SYNDROME [None]
  - BINOCULAR EYE MOVEMENT DISORDER [None]
